FAERS Safety Report 10043284 (Version 1)
Quarter: 2014Q1

REPORT INFORMATION
  Report Type: Report from Study
  Country: IT (occurrence: IT)
  Receive Date: 20140328
  Receipt Date: 20140328
  Transmission Date: 20141002
  Serious: Yes (Hospitalization, Other)
  Sender: FDA-Public Use
  Company Number: IT-ROCHE-1369724

PATIENT
  Age: 64 Year
  Sex: Male

DRUGS (9)
  1. RIBAVIRIN [Suspect]
     Indication: HEPATITIS C
     Route: 048
     Dates: start: 20131211, end: 20140311
  2. SOFOSBUVIR [Suspect]
     Indication: HEPATITIS C
     Route: 048
     Dates: start: 20131211
  3. LACTULOSE [Concomitant]
     Route: 065
  4. MYCOPHENOLATE MOFETIL [Concomitant]
     Route: 065
  5. TACROLIMUS [Concomitant]
  6. FUROSEMIDE [Concomitant]
  7. PROPANOLOL [Concomitant]
  8. POTASSIUM CANRENOATE [Concomitant]
  9. RIFAXIMIN [Concomitant]

REACTIONS (2)
  - Hepatic encephalopathy [Recovered/Resolved]
  - Ascites [Recovered/Resolved]
